FAERS Safety Report 24812714 (Version 1)
Quarter: 2025Q1

REPORT INFORMATION
  Report Type: Report from Study
  Country: US (occurrence: US)
  Receive Date: 20250107
  Receipt Date: 20250107
  Transmission Date: 20250408
  Serious: Yes (Other)
  Sender: ABBVIE
  Company Number: US-ABBVIE-6072746

PATIENT
  Sex: Female

DRUGS (1)
  1. RINVOQ [Suspect]
     Active Substance: UPADACITINIB
     Indication: Product used for unknown indication
     Route: 048
     Dates: start: 20240501

REACTIONS (5)
  - Malignant melanoma [Recovering/Resolving]
  - COVID-19 [Recovering/Resolving]
  - Respiratory tract infection [Recovered/Resolved]
  - Respiratory tract infection [Recovering/Resolving]
  - General symptom [Recovering/Resolving]
